FAERS Safety Report 25861127 (Version 2)
Quarter: 2025Q4

REPORT INFORMATION
  Report Type: Spontaneous
  Country: JP (occurrence: JP)
  Receive Date: 20250929
  Receipt Date: 20251016
  Transmission Date: 20260117
  Serious: Yes (Hospitalization)
  Sender: ELI LILLY AND COMPANY
  Company Number: JP-ELI_LILLY_AND_COMPANY-JP202509022837AA

PATIENT
  Age: 76 Year
  Sex: Male
  Weight: 79 kg

DRUGS (14)
  1. MOUNJARO [Suspect]
     Active Substance: TIRZEPATIDE
     Indication: Type 2 diabetes mellitus
     Dosage: 2.5 MG, WEEKLY (1/W)
     Route: 058
     Dates: start: 20250516, end: 20250517
  2. MOUNJARO [Suspect]
     Active Substance: TIRZEPATIDE
     Indication: Type 2 diabetes mellitus
     Dosage: 2.5 MG, WEEKLY (1/W)
     Route: 058
     Dates: start: 20250516, end: 20250517
  3. MOUNJARO [Suspect]
     Active Substance: TIRZEPATIDE
     Indication: Type 2 diabetes mellitus
     Dosage: 2.5 MG, WEEKLY (1/W)
     Route: 058
     Dates: start: 20250516, end: 20250517
  4. MOUNJARO [Suspect]
     Active Substance: TIRZEPATIDE
     Indication: Type 2 diabetes mellitus
     Dosage: 2.5 MG, WEEKLY (1/W)
     Route: 058
     Dates: start: 20250516, end: 20250517
  5. IPRAGLIFLOZIN L-PROLINE\SITAGLIPTIN PHOSPHATE [Suspect]
     Active Substance: IPRAGLIFLOZIN L-PROLINE\SITAGLIPTIN PHOSPHATE
     Indication: Product used for unknown indication
     Route: 065
  6. EDOXABAN TOSYLATE [Concomitant]
     Active Substance: EDOXABAN TOSYLATE
  7. LANSOPRAZOLE [Concomitant]
     Active Substance: LANSOPRAZOLE
  8. EZETIMIBE [Concomitant]
     Active Substance: EZETIMIBE
  9. ROSUVASTATIN CALCIUM [Concomitant]
     Active Substance: ROSUVASTATIN CALCIUM
  10. MEMANTINE HYDROCHLORIDE OD [Concomitant]
  11. METFORMIN HYDROCHLORIDE [Concomitant]
     Active Substance: METFORMIN HYDROCHLORIDE
  12. LEVETIRACETAM [Concomitant]
     Active Substance: LEVETIRACETAM
  13. LORATADINE [Concomitant]
     Active Substance: LORATADINE
  14. ATARAX P [HYDROXYZINE EMBONATE] [Concomitant]

REACTIONS (7)
  - Mallory-Weiss syndrome [Recovered/Resolved]
  - Hyperhidrosis [Recovered/Resolved]
  - Weight increased [Unknown]
  - Vomiting [Recovered/Resolved]
  - Nausea [Recovered/Resolved]
  - Decreased appetite [Recovered/Resolved]
  - Dyspepsia [Recovered/Resolved]

NARRATIVE: CASE EVENT DATE: 20250517
